FAERS Safety Report 7032228-9 (Version None)
Quarter: 2010Q4

REPORT INFORMATION
  Report Type: 
  Country: None (occurrence: None)
  Receive Date: 20101007
  Receipt Date: 20100927
  Transmission Date: 20110411
  Serious: Yes (Other)
  Sender: FDA-Public Use
  Company Number: US-WYE-H17789610

PATIENT
  Sex: Female
  Weight: 54.03 kg

DRUGS (2)
  1. EFFEXOR XR [Suspect]
     Indication: IRRITABLE BOWEL SYNDROME
     Dates: start: 19950101
  2. ULTRAM [Concomitant]
     Dosage: UNKNOWN

REACTIONS (7)
  - DRUG DEPENDENCE [None]
  - DRUG WITHDRAWAL SYNDROME [None]
  - LOSS OF LIBIDO [None]
  - PANIC REACTION [None]
  - PARAESTHESIA [None]
  - PERSONALITY DISORDER [None]
  - VERTIGO [None]
